FAERS Safety Report 18058860 (Version 1)
Quarter: 2020Q3

REPORT INFORMATION
  Report Type: Spontaneous
  Country: US (occurrence: US)
  Receive Date: 20200722
  Receipt Date: 20200722
  Transmission Date: 20201103
  Serious: Yes (Hospitalization)
  Sender: FDA-Public Use
  Company Number: None

PATIENT
  Sex: Female

DRUGS (1)
  1. LOVENOX [Suspect]
     Active Substance: ENOXAPARIN SODIUM
     Indication: POLYCYTHAEMIA VERA
     Route: 058
     Dates: start: 20200403

REACTIONS (3)
  - Fall [None]
  - Hip surgery [None]
  - Herpes zoster [None]
